FAERS Safety Report 9863724 (Version 2)
Quarter: 2014Q2

REPORT INFORMATION
  Report Type: Spontaneous
  Country: US (occurrence: US)
  Receive Date: 20140203
  Receipt Date: 20140425
  Transmission Date: 20141212
  Serious: No
  Sender: FDA-Public Use
  Company Number: US-009507513-1402USA000765

PATIENT
  Sex: Female
  Weight: 74.83 kg

DRUGS (11)
  1. OXYTROL FOR WOMEN [Suspect]
     Indication: INCONTINENCE
     Dosage: UNK, UNKNOWN
     Route: 062
  2. PREDNISONE [Concomitant]
     Indication: ARTHRITIS
     Dosage: UNK, UNKNOWN
  3. METOPROLOL [Concomitant]
     Indication: HYPERTENSION
     Dosage: UNK, UNKNOWN
  4. PRAVASTATIN SODIUM [Concomitant]
     Indication: BLOOD CHOLESTEROL INCREASED
     Dosage: UNK, UNKNOWN
  5. ISOSORBIDE [Concomitant]
     Indication: CHEST PAIN
     Dosage: UNK, UNKNOWN
  6. LEVOTHYROXINE SODIUM [Concomitant]
     Indication: THYROID DISORDER
     Dosage: UNK, UNKNOWN
  7. GABAPENTIN [Concomitant]
     Indication: NEURALGIA
     Dosage: UNK, UNKNOWN
  8. ONE-A-DAY WOMEN^S [Concomitant]
     Indication: PRODUCT USED FOR UNKNOWN INDICATION
     Dosage: UNK, UNKNOWN
  9. ASCORBIC ACID [Concomitant]
     Indication: PRODUCT USED FOR UNKNOWN INDICATION
     Dosage: UNK, UNKNOWN
  10. VITAMIN D (UNSPECIFIED) [Concomitant]
     Indication: PRODUCT USED FOR UNKNOWN INDICATION
     Dosage: UNK, UNKNOWN
  11. VITAMIN E [Concomitant]
     Indication: PRODUCT USED FOR UNKNOWN INDICATION
     Dosage: UNK, UNKNOWN

REACTIONS (1)
  - Drug ineffective [Unknown]
